FAERS Safety Report 13343072 (Version 5)
Quarter: 2019Q1

REPORT INFORMATION
  Report Type: Spontaneous
  Country: US (occurrence: US)
  Receive Date: 20170316
  Receipt Date: 20190111
  Transmission Date: 20190417
  Serious: Yes (Hospitalization, Disabling, Other)
  Sender: FDA-Public Use
  Company Number: US-ASTRAZENECA-2017SE26624

PATIENT
  Age: 20224 Day
  Sex: Male
  Weight: 102.5 kg

DRUGS (55)
  1. PROTONIX [Suspect]
     Active Substance: PANTOPRAZOLE SODIUM
     Indication: GASTROOESOPHAGEAL REFLUX DISEASE
     Route: 065
     Dates: start: 2005
  2. SIMVASTATIN. [Concomitant]
     Active Substance: SIMVASTATIN
     Dosage: 40.0MG UNKNOWN
     Dates: start: 20070518
  3. EPLERENONE. [Concomitant]
     Active Substance: EPLERENONE
  4. CLONIDINE HYDROCHLORIDE. [Concomitant]
     Active Substance: CLONIDINE HYDROCHLORIDE
     Dates: start: 20051028
  5. CLARINEX [Concomitant]
     Active Substance: DESLORATADINE
     Dates: start: 20151117
  6. NOVOLOG [Concomitant]
     Active Substance: INSULIN ASPART
     Dates: start: 20051028
  7. NIFEDIPINE. [Concomitant]
     Active Substance: NIFEDIPINE
  8. ATORVASTATIN [Concomitant]
     Active Substance: ATORVASTATIN
  9. INSULIN ASPART [Concomitant]
     Active Substance: INSULIN ASPART
  10. FLUTICASONE. [Concomitant]
     Active Substance: FLUTICASONE
  11. LEVOFLOXACIN. [Concomitant]
     Active Substance: LEVOFLOXACIN
     Indication: DIPHTHERIA
     Dosage: 25.0MG UNKNOWN
     Dates: start: 20080829
  12. LEVOFLOXACIN. [Concomitant]
     Active Substance: LEVOFLOXACIN
     Indication: TETANUS
     Dosage: 25.0MG UNKNOWN
     Dates: start: 20080829
  13. NEXIUM [Suspect]
     Active Substance: ESOMEPRAZOLE MAGNESIUM
     Indication: GASTROOESOPHAGEAL REFLUX DISEASE
     Dosage: 40.0MG UNKNOWN
     Route: 048
     Dates: start: 20060512, end: 201502
  14. METFORMIN HYDROCHLORIDE. [Concomitant]
     Active Substance: METFORMIN HYDROCHLORIDE
     Dosage: 500.0MG UNKNOWN
     Dates: start: 20051125
  15. TYLENOL [Concomitant]
     Active Substance: ACETAMINOPHEN
     Dosage: 325 MG TABLET 1 TABLET AS NEEDED EVERY 6 HRS
  16. PROCARDIA-XL [Concomitant]
  17. MAGNESIUM OXIDE. [Concomitant]
     Active Substance: MAGNESIUM OXIDE
  18. CARVEDILOL. [Concomitant]
     Active Substance: CARVEDILOL
  19. PROTONIX [Suspect]
     Active Substance: PANTOPRAZOLE SODIUM
     Indication: GASTROOESOPHAGEAL REFLUX DISEASE
     Dosage: 40.0MG UNKNOWN
     Route: 048
     Dates: start: 20051125
  20. LANTUS [Concomitant]
     Active Substance: INSULIN GLARGINE
     Dates: start: 20051028
  21. MINOXIDIL. [Concomitant]
     Active Substance: MINOXIDIL
  22. METOPROLOL TARTRATE. [Concomitant]
     Active Substance: METOPROLOL TARTRATE
  23. ERGOCALCIFEROL. [Concomitant]
     Active Substance: ERGOCALCIFEROL
  24. FUROSEMIDE. [Concomitant]
     Active Substance: FUROSEMIDE
  25. QUINAPRIL. [Concomitant]
     Active Substance: QUINAPRIL
  26. POTASSIUM CHLORIDE. [Concomitant]
     Active Substance: POTASSIUM CHLORIDE
  27. PSYLLIUM [Concomitant]
     Active Substance: PLANTAGO SEED
  28. CARVEDILOL. [Concomitant]
     Active Substance: CARVEDILOL
     Dosage: 25.0MG UNKNOWN
     Dates: start: 20080829
  29. SPIRIVA [Concomitant]
     Active Substance: TIOTROPIUM BROMIDE MONOHYDRATE
  30. PAXIL [Concomitant]
     Active Substance: PAROXETINE HYDROCHLORIDE
     Dates: start: 20151116
  31. FEBUXOSTAT. [Concomitant]
     Active Substance: FEBUXOSTAT
  32. PAROXETINE. [Concomitant]
     Active Substance: PAROXETINE
  33. NEXIUM [Suspect]
     Active Substance: ESOMEPRAZOLE MAGNESIUM
     Indication: GASTROOESOPHAGEAL REFLUX DISEASE
     Dosage: 40.0MG UNKNOWN
     Route: 048
     Dates: start: 2003, end: 2014
  34. NEXIUM [Suspect]
     Active Substance: ESOMEPRAZOLE MAGNESIUM
     Indication: GASTROOESOPHAGEAL REFLUX DISEASE
     Dosage: 40.0MG UNKNOWN
     Route: 048
     Dates: start: 20140603
  35. METOPROLOL TARTRATE. [Concomitant]
     Active Substance: METOPROLOL TARTRATE
  36. LIPITOR [Concomitant]
     Active Substance: ATORVASTATIN CALCIUM
     Dates: start: 20151002
  37. LONITEN [Concomitant]
     Active Substance: MINOXIDIL
     Dates: start: 20151002
  38. KEFLEX [Concomitant]
     Active Substance: CEPHALEXIN
     Dosage: 25.0MG UNKNOWN
     Dates: start: 20080829
  39. BOOSTRIX [Concomitant]
     Active Substance: TETANUS TOXOID, REDUCED DIPHTHERIA TOXOID AND ACELLULAR PERTUSSIS VACCINE, ADSORBED ANTIGENS
     Indication: TETANUS
     Dosage: 25.0MG UNKNOWN
     Dates: start: 20080829
  40. POLYETHYLENE GLYCOL [Concomitant]
     Active Substance: POLYETHYLENE GLYCOLS
  41. AMLODIPINE [Concomitant]
     Active Substance: AMLODIPINE BESYLATE
  42. MORPHINE [Concomitant]
     Active Substance: MORPHINE
     Indication: DIPHTHERIA
     Dosage: 25.0MG UNKNOWN
     Dates: start: 20080829
  43. MORPHINE [Concomitant]
     Active Substance: MORPHINE
     Indication: TETANUS
     Dosage: 25.0MG UNKNOWN
     Dates: start: 20080829
  44. OXYCODONE [Concomitant]
     Active Substance: OXYCODONE
  45. TRAMADOL. [Concomitant]
     Active Substance: TRAMADOL
  46. HYDRALAZINE HCL [Concomitant]
     Active Substance: HYDRALAZINE HYDROCHLORIDE
  47. KLOR-CON [Concomitant]
     Active Substance: POTASSIUM CHLORIDE
     Dosage: 20 MEQ TABLET EXTENDED RELEASE 2 TABLETS TWICE A DAY
  48. APRESOLINE HYDROCHLORIDE [Concomitant]
     Active Substance: HYDRALAZINE HYDROCHLORIDE
  49. BOOSTRIX [Concomitant]
     Active Substance: TETANUS TOXOID, REDUCED DIPHTHERIA TOXOID AND ACELLULAR PERTUSSIS VACCINE, ADSORBED ANTIGENS
     Indication: DIPHTHERIA
     Dosage: 25.0MG UNKNOWN
     Dates: start: 20080829
  50. COLCHICINE. [Concomitant]
     Active Substance: COLCHICINE
  51. ULORIC [Concomitant]
     Active Substance: FEBUXOSTAT
     Indication: DIPHTHERIA
     Dosage: 25.0MG UNKNOWN
     Dates: start: 20080829
  52. ULORIC [Concomitant]
     Active Substance: FEBUXOSTAT
     Indication: TETANUS
     Dosage: 25.0MG UNKNOWN
     Dates: start: 20080829
  53. ERGOCALCIFEROL. [Concomitant]
     Active Substance: ERGOCALCIFEROL
     Dosage: 50,000 UNITS CAPSULE 1 CAPSULE ONCE A MONTH
  54. HYDRALAZINE [Concomitant]
     Active Substance: HYDRALAZINE HYDROCHLORIDE
  55. TIOTROPIUM BROMIDE [Concomitant]
     Active Substance: TIOTROPIUM BROMIDE

REACTIONS (6)
  - Chronic kidney disease [Not Recovered/Not Resolved]
  - End stage renal disease [Not Recovered/Not Resolved]
  - Acute kidney injury [Not Recovered/Not Resolved]
  - Hyperparathyroidism secondary [Unknown]
  - Nephrogenic anaemia [Unknown]
  - Renal failure [Unknown]

NARRATIVE: CASE EVENT DATE: 20121008
